FAERS Safety Report 18816348 (Version 1)
Quarter: 2021Q1

REPORT INFORMATION
  Report Type: Spontaneous
  Country: US (occurrence: US)
  Receive Date: 20210201
  Receipt Date: 20210201
  Transmission Date: 20210419
  Serious: Yes (Death)
  Sender: FDA-Public Use
  Company Number: None

PATIENT
  Age: 58 Year
  Sex: Male

DRUGS (7)
  1. POLYETH GLYC [Concomitant]
     Active Substance: POLYETHYLENE GLYCOLS
  2. DOK [Concomitant]
     Active Substance: DOCUSATE SODIUM
  3. AMOX/K CLAV [Concomitant]
     Active Substance: AMOXICILLIN\CLAVULANATE POTASSIUM
  4. COSENTYX [Suspect]
     Active Substance: SECUKINUMAB
     Indication: PSORIASIS
     Dosage: ?          OTHER FREQUENCY:EVERY 4 WEEKS;?
     Route: 058
     Dates: start: 20200824, end: 20210115
  5. GABAPENTIN. [Concomitant]
     Active Substance: GABAPENTIN
  6. METHOCARBAM [Concomitant]
     Active Substance: METHOCARBAMOL
  7. PAIN RELIEVR [Concomitant]

REACTIONS (1)
  - Death [None]

NARRATIVE: CASE EVENT DATE: 20210115
